FAERS Safety Report 12154212 (Version 1)
Quarter: 2016Q1

REPORT INFORMATION
  Report Type: Spontaneous
  Country: US (occurrence: None)
  Receive Date: 20160304
  Receipt Date: 20160304
  Transmission Date: 20160526
  Serious: Yes (Disabling)
  Sender: FDA-Public Use
  Company Number: None

PATIENT
  Age: 65 Year
  Sex: Female
  Weight: 112.04 kg

DRUGS (12)
  1. K+ [Concomitant]
     Active Substance: POTASSIUM
  2. DEXILANT [Concomitant]
     Active Substance: DEXLANSOPRAZOLE
  3. CYMBALA [Concomitant]
  4. FOLIC ACID. [Concomitant]
     Active Substance: FOLIC ACID
  5. ASPIRIN. [Concomitant]
     Active Substance: ASPIRIN
  6. ASPIRIN. [Concomitant]
     Active Substance: ASPIRIN
  7. CELECOXIB 200 MG LUPIN [Suspect]
     Active Substance: CELECOXIB
     Indication: RHEUMATOID ARTHRITIS
     Route: 048
     Dates: start: 20160301
  8. METHOTREXATE [Concomitant]
     Active Substance: METHOTREXATE
  9. CARDIZEM [Concomitant]
     Active Substance: DILTIAZEM HYDROCHLORIDE
  10. LISINOPRIL. [Concomitant]
     Active Substance: LISINOPRIL
  11. LYRICS [Concomitant]
  12. HUMIRA [Concomitant]
     Active Substance: ADALIMUMAB

REACTIONS (3)
  - Pain [None]
  - Product substitution issue [None]
  - Musculoskeletal stiffness [None]

NARRATIVE: CASE EVENT DATE: 20160216
